FAERS Safety Report 21108044 (Version 1)
Quarter: 2022Q3

REPORT INFORMATION
  Report Type: Spontaneous
  Country: US (occurrence: US)
  Receive Date: 20220720
  Receipt Date: 20220720
  Transmission Date: 20221027
  Serious: No
  Sender: FDA-Public Use
  Company Number: US-SA-SAC20220718001566

PATIENT
  Age: 56 Year
  Sex: Female

DRUGS (29)
  1. KEVZARA [Suspect]
     Active Substance: SARILUMAB
     Indication: Rheumatoid arthritis
     Dosage: 300 MG, QOW
     Route: 058
     Dates: start: 20211013
  2. ALBUTEROL SULFATE [Concomitant]
     Active Substance: ALBUTEROL SULFATE
  3. ANORO ELLIPTA [Concomitant]
     Active Substance: UMECLIDINIUM BROMIDE\VILANTEROL TRIFENATATE
  4. TERBINAFINE HYDROCHLORIDE [Concomitant]
     Active Substance: TERBINAFINE HYDROCHLORIDE
  5. VITAMINS NOS [Concomitant]
     Active Substance: VITAMINS
  6. B COMPLEX PLUS VITAMIN C [Concomitant]
  7. BIOTIN [Concomitant]
     Active Substance: BIOTIN
  8. XYLITOL [Concomitant]
     Active Substance: XYLITOL
  9. CRANBERRY + VITAMIN C [MALPIGHIA GLABRA;VACCINIUM MACROCARPON FRUIT] [Concomitant]
  10. APPLE CIDER VINEGAR [Concomitant]
     Active Substance: APPLE CIDER VINEGAR
  11. LORATADINE [Concomitant]
     Active Substance: LORATADINE
  12. VITAMIN D NOS [Concomitant]
     Active Substance: VITAMIN D NOS
  13. HYDROXYCHLOROQUINE SULFATE [Concomitant]
     Active Substance: HYDROXYCHLOROQUINE SULFATE
  14. ASPIRIN [Concomitant]
     Active Substance: ASPIRIN
  15. OMEPRAZOLE [Concomitant]
     Active Substance: OMEPRAZOLE
  16. SPIRONOLACTONE [Concomitant]
     Active Substance: SPIRONOLACTONE
  17. VICODIN [Concomitant]
     Active Substance: ACETAMINOPHEN\HYDROCODONE BITARTRATE
  18. POTASSIUM [Concomitant]
     Active Substance: POTASSIUM
  19. MONTELUKAST SODIUM [Concomitant]
     Active Substance: MONTELUKAST SODIUM
  20. AMLODIPINE BESYLATE [Concomitant]
     Active Substance: AMLODIPINE BESYLATE
  21. BREO ELLIPTA [Concomitant]
     Active Substance: FLUTICASONE FUROATE\VILANTEROL TRIFENATATE
  22. AZELASTINE HYDROCHLORIDE [Concomitant]
     Active Substance: AZELASTINE HYDROCHLORIDE
  23. DICLOFENAC SODIUM [Concomitant]
     Active Substance: DICLOFENAC SODIUM
  24. ACYCLOVIR [Concomitant]
     Active Substance: ACYCLOVIR
  25. GABAPENTIN [Concomitant]
     Active Substance: GABAPENTIN
  26. BACLOFEN [Concomitant]
     Active Substance: BACLOFEN
  27. MELOXICAM [Concomitant]
     Active Substance: MELOXICAM
  28. FLONASE ALLERGY RELIEF [Concomitant]
     Active Substance: FLUTICASONE PROPIONATE
  29. OXYGEN [Concomitant]
     Active Substance: OXYGEN

REACTIONS (2)
  - Arthralgia [Unknown]
  - Condition aggravated [Unknown]

NARRATIVE: CASE EVENT DATE: 20220701
